FAERS Safety Report 5010494-9 (Version None)
Quarter: 2006Q2

REPORT INFORMATION
  Report Type: 
  Country: None (occurrence: None)
  Receive Date: 20060525
  Receipt Date: 20051003
  Transmission Date: 20061013
  Serious: No
  Sender: FDA-Public Use
  Company Number: US-GLAXOSMITHKLINE-A0576705A

PATIENT
  Age: 65 Year
  Sex: Female

DRUGS (2)
  1. BACTROBAN [Suspect]
     Route: 061
     Dates: start: 20040601, end: 20040101
  2. PROCARDIA [Concomitant]

REACTIONS (2)
  - DRUG INEFFECTIVE [None]
  - SKIN DISORDER [None]
